FAERS Safety Report 10402950 (Version 1)
Quarter: 2014Q3

REPORT INFORMATION
  Report Type: Spontaneous
  Country: US (occurrence: None)
  Receive Date: 20140820
  Receipt Date: 20140820
  Transmission Date: 20150326
  Serious: Yes (Other)
  Sender: FDA-Public Use
  Company Number: IMP_07826_2014

PATIENT
  Age: 34 Year
  Sex: Female

DRUGS (1)
  1. BACLOFEN. [Suspect]
     Active Substance: BACLOFEN
     Indication: MUSCLE SPASMS
     Dosage: SINGLE BOLUS DOSE GIVEN OVER 30 MINUTES?
     Route: 037

REACTIONS (6)
  - Drug intolerance [None]
  - Treatment failure [None]
  - Nausea [None]
  - Gait disturbance [None]
  - Headache [None]
  - Clonus [None]
